FAERS Safety Report 5421290-2 (Version None)
Quarter: 2007Q3

REPORT INFORMATION
  Report Type: 
  Country: None (occurrence: None)
  Receive Date: 20070817
  Receipt Date: 20070807
  Transmission Date: 20080115
  Serious: Yes (Other)
  Sender: FDA-Public Use
  Company Number: 016959

PATIENT
  Age: 16 Year
  Sex: Male

DRUGS (1)
  1. CLARAVIS [Suspect]
     Indication: ACNE
     Dosage: 20 MG, BID, ORAL
     Route: 048
     Dates: start: 20070301, end: 20070731

REACTIONS (5)
  - ANXIETY [None]
  - BLOOD BILIRUBIN INCREASED [None]
  - DEHYDRATION [None]
  - HALLUCINATION, AUDITORY [None]
  - HALLUCINATION, VISUAL [None]
